FAERS Safety Report 16963943 (Version 1)
Quarter: 2019Q4

REPORT INFORMATION
  Report Type: Spontaneous
  Country: US (occurrence: US)
  Receive Date: 20190909
  Receipt Date: 20190909
  Transmission Date: 20200122
  Serious: No
  Sender: FDA-Public Use
  Company Number: None

PATIENT
  Age: 82 Year
  Sex: Female

DRUGS (4)
  1. METFORMIN [Concomitant]
     Active Substance: METFORMIN HYDROCHLORIDE
  2. ATORVASTATIN [Concomitant]
     Active Substance: ATORVASTATIN
  3. CARVEDIOLOL [Concomitant]
  4. IMATINIB 400MG TAB (X30) [Suspect]
     Active Substance: IMATINIB
     Indication: NEOPLASM
     Route: 048
     Dates: start: 20190320

REACTIONS (2)
  - Heart rate increased [None]
  - Skin hypopigmentation [None]

NARRATIVE: CASE EVENT DATE: 20190901
